FAERS Safety Report 23912550 (Version 2)
Quarter: 2024Q2

REPORT INFORMATION
  Report Type: Report from Study
  Country: BR (occurrence: BR)
  Receive Date: 20240528
  Receipt Date: 20240601
  Transmission Date: 20240716
  Serious: Yes (Other)
  Sender: FDA-Public Use
  Company Number: BR-CELLTRION INC.-2024BR012239

PATIENT

DRUGS (3)
  1. INFLIXIMAB [Suspect]
     Active Substance: INFLIXIMAB
     Indication: Psoriatic arthropathy
     Dosage: 5 AMPOULES EVERY 2 MONTHS
     Route: 042
     Dates: start: 20230222
  2. INFLIXIMAB [Suspect]
     Active Substance: INFLIXIMAB
     Dosage: 5 AMPOULES EVERY 2 MONTHS
     Route: 042
     Dates: start: 20240520
  3. VALSARTAN AND HYDROCHLOROTHIAZIDE [Concomitant]
     Active Substance: HYDROCHLOROTHIAZIDE\VALSARTAN
     Indication: Hypertension
     Dosage: 1 PILL A DAY, START DATE: 5 YEARS
     Route: 048

REACTIONS (5)
  - Psoriatic arthropathy [Recovering/Resolving]
  - Influenza like illness [Not Recovered/Not Resolved]
  - Therapeutic response shortened [Recovering/Resolving]
  - Product dispensing issue [Not Recovered/Not Resolved]
  - Intentional dose omission [Not Recovered/Not Resolved]

NARRATIVE: CASE EVENT DATE: 20240508
